FAERS Safety Report 8321123-0 (Version None)
Quarter: 2012Q2

REPORT INFORMATION
  Report Type: 
  Country: None (occurrence: None)
  Receive Date: 20120430
  Receipt Date: 20120419
  Transmission Date: 20120825
  Serious: Yes (Death)
  Sender: FDA-Public Use
  Company Number: US-EISAI INC-E3810-05469-SOL-US

PATIENT
  Sex: Female

DRUGS (1)
  1. ACIPHEX [Suspect]

REACTIONS (1)
  - RESPIRATORY FAILURE [None]
